FAERS Safety Report 8587690-7 (Version None)
Quarter: 2012Q3

REPORT INFORMATION
  Report Type: 
  Country: None (occurrence: None)
  Receive Date: 20120813
  Receipt Date: 20120807
  Transmission Date: 20120928
  Serious: Yes (Hospitalization, Disabling)
  Sender: FDA-Public Use
  Company Number: CA-AMGEN-CANSP2012049555

PATIENT
  Age: 75 Year
  Sex: Female
  Weight: 56 kg

DRUGS (10)
  1. DILTIAZEM [Concomitant]
     Dosage: UNK
  2. INDAPAMIDE [Concomitant]
     Dosage: UNK
  3. ENBREL [Suspect]
     Indication: PRODUCT USED FOR UNKNOWN INDICATION
     Dosage: 50 MUG, QWK
     Route: 058
  4. PREDNISONE TAB [Concomitant]
     Dosage: UNK
  5. RISEDRONATE SODIUM [Concomitant]
     Dosage: UNK
  6. CYCLOBENZAPRINE [Concomitant]
     Dosage: UNK
  7. LANSOPRAZOLE [Concomitant]
     Dosage: UNK
  8. SYMBICORT TU [Concomitant]
     Dosage: UNK
  9. CALCIUM [Concomitant]
     Dosage: UNK
  10. LORAZEPAM [Concomitant]
     Dosage: UNK

REACTIONS (4)
  - DIPLEGIA [None]
  - TONGUE PARALYSIS [None]
  - PARAESTHESIA [None]
  - NEUROLOGICAL EYELID DISORDER [None]
